FAERS Safety Report 14183670 (Version 1)
Quarter: 2017Q4

REPORT INFORMATION
  Report Type: Spontaneous
  Country: US (occurrence: US)
  Receive Date: 20171113
  Receipt Date: 20171113
  Transmission Date: 20180321
  Serious: No
  Sender: FDA-Public Use
  Company Number: US-B.I. PHARMACEUTICALS,INC./RIDGEFIELD-2017-BI-059912

PATIENT
  Age: 53 Year
  Sex: Male
  Weight: 136 kg

DRUGS (21)
  1. RANEXA [Concomitant]
     Active Substance: RANOLAZINE
     Indication: ANGINA PECTORIS
     Dosage: 1 TABLET 1 TIME DAILY;  FORM STRENGTH: 500 MG; FORMULATION: TABLET
     Route: 048
  2. SPIRONOLACTONE. [Concomitant]
     Active Substance: SPIRONOLACTONE
     Indication: OEDEMA PERIPHERAL
     Dosage: 1 TABLET 1 TIME DAILY;  FORM STRENGTH: 25 MG; FORMULATION: TABLET
     Route: 048
  3. VITAMIN B12 [Concomitant]
     Active Substance: CYANOCOBALAMIN
     Indication: VITAMIN B12 DEFICIENCY
     Dosage: 1 TABLET 1 TIME DAILY;  FORM STRENGTH: 5000 MCG; FORMULATION: TABLET
     Route: 048
  4. BESIVANCE OPHTHALMIC SOLUTION [Concomitant]
     Indication: STAPHYLOCOCCAL INFECTION
     Dosage: 1-2 DROP LEFT EYE Q 1 HR;
     Route: 065
     Dates: start: 201708
  5. DOCUSATE [Concomitant]
     Active Substance: DOCUSATE
     Indication: PRODUCT USED FOR UNKNOWN INDICATION
     Dosage: 1 CAPSULE QHS;  FORM STRENGTH: 250 MG; FORMULATION: CAPSULE
     Route: 048
  6. FUROSEMIDE. [Concomitant]
     Active Substance: FUROSEMIDE
     Indication: OEDEMA PERIPHERAL
     Dosage: 1 TABLET 1 TIME DAILY Q AM;  FORM STRENGTH: 80 MG; FORMULATION: TABLET
     Route: 048
  7. HUMALOG PEN [Concomitant]
     Active Substance: INSULIN LISPRO
     Indication: TYPE 2 DIABETES MELLITUS
     Dosage: TID;  FORM STRENGTH: SLIDING SCALE; FORMULATION: SUBCUTANEOUS
     Route: 058
  8. PREDNISOLONE ACETATE OPHTHALMIC SUSPENSION [Concomitant]
     Indication: STAPHYLOCOCCAL INFECTION
     Dosage: 1 DROP LEFT EYE QID;
     Route: 065
  9. ATORVASTATIN [Concomitant]
     Active Substance: ATORVASTATIN
     Indication: PRODUCT USED FOR UNKNOWN INDICATION
     Dosage: 1 TABLET 1 TIME DAILY;  FORM STRENGTH: 80 MG; FORMULATION: TABLET
     Route: 048
     Dates: start: 2014
  10. FUROSEMIDE. [Concomitant]
     Active Substance: FUROSEMIDE
     Indication: CARDIAC FAILURE
     Dosage: 1 TABLET 1 TIME DAILY Q HS;  FORM STRENGTH: 40 MG; FORMULATION: TABLET
     Route: 048
  11. GABAPENTIN. [Concomitant]
     Active Substance: GABAPENTIN
     Indication: DIABETIC NEUROPATHY
     Dosage: 1 CAPSULE TID;  FORM STRENGTH: 300 MG; FORMULATION: CAPSULE
     Route: 048
     Dates: start: 2016
  12. CORLANOR [Concomitant]
     Active Substance: IVABRADINE HYDROCHLORIDE
     Indication: CARDIAC FAILURE
     Dosage: 1 TABLET BID;  FORM STRENGTH: 5 MG; FORMULATION: TABLET
     Route: 048
  13. DIGOXIN. [Concomitant]
     Active Substance: DIGOXIN
     Indication: CARDIAC FAILURE
     Dosage: 1 TABLET 1 TIME DAILY;  FORM STRENGTH: 12.5 MCG; FORMULATION: TABLET
     Route: 048
  14. ENALAPRIL [Concomitant]
     Active Substance: ENALAPRIL
     Indication: PRODUCT USED FOR UNKNOWN INDICATION
     Dosage: 1 TABLET BID;  FORM STRENGTH: 5 MG; FORMULATION: TABLET
     Route: 048
  15. JARDIANCE [Suspect]
     Active Substance: EMPAGLIFLOZIN
     Indication: TYPE 2 DIABETES MELLITUS
     Dosage: ACTION(S) TAKEN WITH PRODUCT: DOSE NOT CHANGED
     Route: 048
     Dates: start: 201708
  16. TOUJEO [Concomitant]
     Active Substance: INSULIN GLARGINE
     Indication: TYPE 2 DIABETES MELLITUS
     Dosage: BID;  FORM STRENGTH: 50 UNITS; FORMULATION: SUBCUTANEOUS
     Route: 058
     Dates: start: 2017
  17. CARVEDILOL. [Concomitant]
     Active Substance: CARVEDILOL
     Indication: CARDIAC FAILURE
     Dosage: 1 TABLET BID;  FORM STRENGTH: 12.5 MG; FORMULATION: TABLET
     Route: 048
  18. MAGNESIUM [Concomitant]
     Active Substance: MAGNESIUM
     Indication: BLOOD MAGNESIUM DECREASED
     Dosage: 1 TABLET 1 TIME DAILY;  FORM STRENGTH: 500 MG; FORMULATION: TABLET
     Route: 048
     Dates: start: 2016
  19. POLYMYXIN B AND TRIMETHOPRIM OPHTHALMIC SOLUTION [Concomitant]
     Indication: STAPHYLOCOCCAL INFECTION
     Dosage: 1 DROP LEFT EYE Q 1HR;
     Route: 065
     Dates: end: 201710
  20. KLOR-CON [Concomitant]
     Active Substance: POTASSIUM CHLORIDE
     Indication: PRODUCT USED FOR UNKNOWN INDICATION
     Dosage: 1 TABLET 1 TIME DAILY;  FORM STRENGTH: 20 MEQ; FORMULATION: TABLET
     Route: 048
  21. ASPIRIN. [Concomitant]
     Active Substance: ASPIRIN
     Indication: MYOCARDIAL INFARCTION
     Dosage: 1 TABLET 1 TIME DAILY;  FORM STRENGTH: 81 MG; FORMULATION: TABLET
     Route: 048
     Dates: start: 2015

REACTIONS (3)
  - Thirst [Not Recovered/Not Resolved]
  - Dry mouth [Not Recovered/Not Resolved]
  - Weight increased [Recovered/Resolved]

NARRATIVE: CASE EVENT DATE: 201709
